FAERS Safety Report 11846034 (Version 1)
Quarter: 2015Q4

REPORT INFORMATION
  Report Type: Spontaneous
  Country: US (occurrence: US)
  Receive Date: 20151217
  Receipt Date: 20151217
  Transmission Date: 20160305
  Serious: No
  Sender: FDA-Public Use
  Company Number: US-NOVOPROD-450120

PATIENT
  Sex: Male

DRUGS (2)
  1. LEVEMIR [Suspect]
     Active Substance: INSULIN DETEMIR
     Indication: TYPE 2 DIABETES MELLITUS
     Dosage: 12 U, QD
     Route: 058
     Dates: start: 20150121
  2. LEVEMIR [Suspect]
     Active Substance: INSULIN DETEMIR
     Dosage: 10 U, BID
     Route: 058

REACTIONS (6)
  - Ear infection [Not Recovered/Not Resolved]
  - Rash [Not Recovered/Not Resolved]
  - Anger [Not Recovered/Not Resolved]
  - Candida infection [Recovered/Resolved]
  - Diabetes mellitus inadequate control [Not Recovered/Not Resolved]
  - Weight decreased [Not Recovered/Not Resolved]

NARRATIVE: CASE EVENT DATE: 20150126
